FAERS Safety Report 21291891 (Version 3)
Quarter: 2022Q4

REPORT INFORMATION
  Report Type: Spontaneous
  Country: US (occurrence: US)
  Receive Date: 20220904
  Receipt Date: 20221020
  Transmission Date: 20230113
  Serious: No
  Sender: FDA-Public Use
  Company Number: US-GSK-US2022126132

PATIENT
  Sex: Male

DRUGS (1)
  1. ADVAIR HFA [Suspect]
     Active Substance: FLUTICASONE PROPIONATE\SALMETEROL XINAFOATE
     Indication: Cough
     Dosage: UNK (230/21MCG)

REACTIONS (5)
  - Cough [Unknown]
  - Drug ineffective [Unknown]
  - Underdose [Unknown]
  - Product prescribing issue [Unknown]
  - Product complaint [Unknown]
